FAERS Safety Report 9571964 (Version 1)
Quarter: 2013Q4

REPORT INFORMATION
  Report Type: Spontaneous
  Country: US (occurrence: US)
  Receive Date: 20131001
  Receipt Date: 20131001
  Transmission Date: 20140711
  Serious: No
  Sender: FDA-Public Use
  Company Number: US-PURDUE-USA-2011-0079221

PATIENT
  Age: 58 Year
  Sex: Female
  Weight: 120.18 kg

DRUGS (7)
  1. BUTRANS [Suspect]
     Indication: NECK PAIN
     Dosage: 5 MCG, Q1H
     Route: 062
     Dates: start: 20110602, end: 20110616
  2. BUTRANS [Suspect]
     Indication: BACK PAIN
  3. SOMA [Concomitant]
     Indication: NECK PAIN
     Dosage: 350 MG, TID
     Dates: start: 20101028
  4. SOMA [Concomitant]
     Indication: BACK PAIN
  5. PERCOCET                           /00446701/ [Concomitant]
     Indication: BREAKTHROUGH PAIN
     Dosage: 10 MG, Q6H PRN
     Dates: start: 20101111
  6. PERCOCET                           /00446701/ [Concomitant]
     Indication: NECK PAIN
  7. PERCOCET                           /00446701/ [Concomitant]
     Indication: BACK PAIN

REACTIONS (5)
  - Application site exfoliation [Recovered/Resolved]
  - Unevaluable event [Recovered/Resolved]
  - Application site rash [Recovered/Resolved]
  - Application site erythema [Recovered/Resolved]
  - Application site dryness [Recovered/Resolved]
